FAERS Safety Report 5876464-3 (Version None)
Quarter: 2008Q3

REPORT INFORMATION
  Report Type: 
  Country: None (occurrence: None)
  Receive Date: 20080910
  Receipt Date: 20080829
  Transmission Date: 20090109
  Serious: Yes (Death)
  Sender: FDA-Public Use
  Company Number: A0727947B

PATIENT
  Age: 60 Year
  Sex: Male

DRUGS (2)
  1. ROSIGLITAZONE [Suspect]
     Dosage: 8MG PER DAY
     Route: 048
     Dates: start: 20070705
  2. ARICEPT [Concomitant]
     Dosage: 5MG PER DAY
     Route: 048
     Dates: start: 20040317

REACTIONS (6)
  - ASTHENIA [None]
  - CARDIAC FAILURE ACUTE [None]
  - DECREASED APPETITE [None]
  - DEMENTIA ALZHEIMER'S TYPE [None]
  - PALLOR [None]
  - SOMNOLENCE [None]
